FAERS Safety Report 7958294-1 (Version None)
Quarter: 2011Q4

REPORT INFORMATION
  Report Type: 
  Country: None (occurrence: None)
  Receive Date: 20111205
  Receipt Date: 20111013
  Transmission Date: 20120403
  Serious: Yes (Hospitalization)
  Sender: FDA-Public Use
  Company Number: PHHO2008DE06282

PATIENT
  Sex: Female
  Weight: 89 kg

DRUGS (6)
  1. SIMULECT [Suspect]
     Dosage: 20 MG, UNK
     Route: 042
     Dates: start: 20080429, end: 20080429
  2. PREDNISONE TAB [Suspect]
     Indication: RENAL TRANSPLANT
     Dosage: UNK
     Dates: start: 20080426
  3. MYFORTIC [Suspect]
     Indication: RENAL TRANSPLANT
     Dosage: 1440 MG, UNK
     Route: 048
     Dates: start: 20080422
  4. SIMULECT [Suspect]
     Indication: RENAL TRANSPLANT
     Dosage: 20 MG, UNK
     Route: 042
     Dates: start: 20080425, end: 20080425
  5. EVEROLIMUS [Suspect]
     Indication: RENAL TRANSPLANT
     Dosage: 1.25 MG, BID
     Route: 048
     Dates: start: 20080730
  6. SANDIMMUNE [Suspect]
     Indication: RENAL TRANSPLANT
     Dosage: 280 MG, UNK
     Route: 048
     Dates: start: 20080422

REACTIONS (6)
  - KIDNEY TRANSPLANT REJECTION [None]
  - C-REACTIVE PROTEIN INCREASED [None]
  - URINARY TRACT INFECTION [None]
  - BLOOD CREATININE INCREASED [None]
  - RENAL IMPAIRMENT [None]
  - DRUG INEFFECTIVE [None]
